FAERS Safety Report 11512393 (Version 1)
Quarter: 2015Q3

REPORT INFORMATION
  Report Type: Spontaneous
  Country: US (occurrence: US)
  Receive Date: 20150916
  Receipt Date: 20150916
  Transmission Date: 20151125
  Serious: Yes (Other)
  Sender: FDA-Public Use
  Company Number: US-ASTRAZENECA-2015SE88367

PATIENT
  Sex: Female
  Weight: 40.8 kg

DRUGS (4)
  1. THYROID PILLS [Concomitant]
     Dosage: PILLS
  2. BLOOD PRESSURE PILLS [Concomitant]
     Active Substance: UNSPECIFIED INGREDIENT
     Dosage: PILLS
  3. POTASSIUM PILLS [Concomitant]
     Active Substance: POTASSIUM
     Dosage: PILLS
  4. TUDORZA PRESSAIR [Suspect]
     Active Substance: ACLIDINIUM BROMIDE
     Indication: CHRONIC OBSTRUCTIVE PULMONARY DISEASE
     Route: 055

REACTIONS (3)
  - Malaise [Unknown]
  - Gait disturbance [Unknown]
  - Product quality issue [Unknown]
